FAERS Safety Report 16896521 (Version 2)
Quarter: 2020Q1

REPORT INFORMATION
  Report Type: Spontaneous
  Country: GB (occurrence: GB)
  Receive Date: 20191008
  Receipt Date: 20200221
  Transmission Date: 20200409
  Serious: Yes (Disabling)
  Sender: FDA-Public Use
  Company Number: GB-BAUSCH-BL-2019-056937

PATIENT

DRUGS (2)
  1. VENLAFAXINE [Suspect]
     Active Substance: VENLAFAXINE HYDROCHLORIDE
     Indication: PRODUCT USED FOR UNKNOWN INDICATION
     Route: 064
     Dates: start: 20180101
  2. SERTRALINE [Concomitant]
     Active Substance: SERTRALINE HYDROCHLORIDE
     Indication: PRODUCT USED FOR UNKNOWN INDICATION
     Dosage: (BRIEFLY) DURING FIRST TRIMESTER
     Route: 064

REACTIONS (12)
  - Neurological examination abnormal [Not Recovered/Not Resolved]
  - Newborn persistent pulmonary hypertension [Unknown]
  - Premature baby [Unknown]
  - Hepatic function abnormal [Recovering/Resolving]
  - Periventricular leukomalacia [Unknown]
  - Agitation neonatal [Not Recovered/Not Resolved]
  - Jaundice [Recovering/Resolving]
  - Acute kidney injury [Recovering/Resolving]
  - Sepsis [Unknown]
  - Foetal exposure during pregnancy [Unknown]
  - Preterm premature rupture of membranes [Unknown]
  - Dyspnoea [Unknown]
